FAERS Safety Report 24741860 (Version 1)
Quarter: 2024Q4

REPORT INFORMATION
  Report Type: Spontaneous
  Country: GE (occurrence: GE)
  Receive Date: 20241217
  Receipt Date: 20241217
  Transmission Date: 20250115
  Serious: Yes (Hospitalization)
  Sender: SOLARIS PHARMA CORPORATION
  Company Number: GE-SPC-000534

PATIENT
  Age: 55 Year
  Sex: Male

DRUGS (9)
  1. METRONIDAZOLE [Suspect]
     Active Substance: METRONIDAZOLE
     Indication: Megacolon
     Route: 065
     Dates: start: 2024
  2. VANCOMYCIN [Suspect]
     Active Substance: VANCOMYCIN
     Indication: Antibiotic therapy
     Dosage: MAXIMAL DOSES
     Route: 065
     Dates: start: 2024
  3. VANCOMYCIN [Suspect]
     Active Substance: VANCOMYCIN
     Indication: Clostridium difficile infection
     Route: 048
     Dates: start: 2024
  4. METRONIDAZOLE [Suspect]
     Active Substance: METRONIDAZOLE
     Indication: Clostridium difficile infection
     Route: 065
  5. VANCOMYCIN [Suspect]
     Active Substance: VANCOMYCIN
     Indication: Megacolon
     Dosage: MAXIMAL DOSES
     Route: 048
     Dates: start: 2024
  6. VANCOMYCIN [Suspect]
     Active Substance: VANCOMYCIN
     Indication: Megacolon
     Route: 048
     Dates: start: 2024
  7. VANCOMYCIN [Suspect]
     Active Substance: VANCOMYCIN
     Indication: Clostridium difficile infection
     Route: 048
     Dates: start: 2024
  8. VANCOMYCIN [Suspect]
     Active Substance: VANCOMYCIN
     Indication: Megacolon
     Route: 054
     Dates: start: 2024
  9. VANCOMYCIN [Suspect]
     Active Substance: VANCOMYCIN
     Indication: Clostridium difficile infection
     Route: 054
     Dates: start: 2024

REACTIONS (2)
  - Product use in unapproved indication [Unknown]
  - Therapeutic product effect incomplete [Unknown]

NARRATIVE: CASE EVENT DATE: 20240101
